FAERS Safety Report 9144337 (Version 1)
Quarter: 2013Q1

REPORT INFORMATION
  Report Type: Spontaneous
  Country: FR (occurrence: FR)
  Receive Date: 20130306
  Receipt Date: 20130306
  Transmission Date: 20140127
  Serious: Yes (Other)
  Sender: FDA-Public Use
  Company Number: FR-ROCHE-1196740

PATIENT
  Age: 54 Year
  Sex: Male
  Weight: 80 kg

DRUGS (4)
  1. RIVOTRIL [Suspect]
     Indication: PRODUCT USED FOR UNKNOWN INDICATION
     Dosage: PROGRESSIVE DOSE
     Route: 048
     Dates: start: 201209
  2. RIVOTRIL [Suspect]
     Route: 048
     Dates: start: 201209
  3. DEPAKINE [Concomitant]
     Route: 065
  4. DEROXAT [Concomitant]
     Route: 065

REACTIONS (4)
  - Ill-defined disorder [Unknown]
  - Disturbance in attention [Unknown]
  - Flight of ideas [Unknown]
  - Gynaecomastia [Unknown]
